FAERS Safety Report 25146840 (Version 1)
Quarter: 2025Q2

REPORT INFORMATION
  Report Type: Spontaneous
  Country: CN (occurrence: CN)
  Receive Date: 20250401
  Receipt Date: 20250401
  Transmission Date: 20250717
  Serious: Yes (Other)
  Sender: AMNEAL
  Company Number: CN-AMNEAL PHARMACEUTICALS-2025-AMRX-01163

PATIENT
  Age: 58 Year
  Sex: Female

DRUGS (5)
  1. SULFAMETHOXAZOLE AND TRIMETHOPRIM [Suspect]
     Active Substance: SULFAMETHOXAZOLE\TRIMETHOPRIM
     Indication: Pneumocystis jirovecii pneumonia
     Dosage: 400MG/80MG, 3 TABLETS, 3 /DAY
     Route: 048
  2. SULFAMETHOXAZOLE AND TRIMETHOPRIM [Suspect]
     Active Substance: SULFAMETHOXAZOLE\TRIMETHOPRIM
     Dosage: 400MG/80MG, 2 TABLETS, QD
     Route: 048
  3. SULFAMETHOXAZOLE AND TRIMETHOPRIM [Suspect]
     Active Substance: SULFAMETHOXAZOLE\TRIMETHOPRIM
     Dosage: 400MG/80MG, 3 TABLETS, 3 /DAY
     Route: 048
  4. SULFAMETHOXAZOLE AND TRIMETHOPRIM [Suspect]
     Active Substance: SULFAMETHOXAZOLE\TRIMETHOPRIM
     Dosage: 400MG/80MG, 2 TABLETS, QD
     Route: 048
  5. GANCICLOVIR [Concomitant]
     Active Substance: GANCICLOVIR
     Indication: Product used for unknown indication
     Dosage: 0.3 GRAM, 2 /DAY
     Route: 042

REACTIONS (2)
  - Renal tubular acidosis [Unknown]
  - Pneumomediastinum [Recovering/Resolving]
